FAERS Safety Report 5757944-8 (Version None)
Quarter: 2008Q2

REPORT INFORMATION
  Report Type: 
  Country: None (occurrence: None)
  Receive Date: 20080530
  Receipt Date: 20080519
  Transmission Date: 20081010
  Serious: Yes (Other)
  Sender: FDA-Public Use
  Company Number: 234727J08USA

PATIENT
  Sex: Female
  Weight: 0.3143 kg

DRUGS (1)
  1. REBIF [Suspect]
     Indication: MULTIPLE SCLEROSIS

REACTIONS (6)
  - CERVICAL INCOMPETENCE [None]
  - INFECTION [None]
  - INTRA-UTERINE DEATH [None]
  - PLACENTAL DISORDER [None]
  - PREMATURE LABOUR [None]
  - TRANSMISSION OF DRUG VIA SEMEN [None]
